FAERS Safety Report 7277916-4 (Version None)
Quarter: 2011Q1

REPORT INFORMATION
  Report Type: 
  Country: None (occurrence: None)
  Receive Date: 20110207
  Receipt Date: 20110125
  Transmission Date: 20110831
  Serious: Yes (Death, Other)
  Sender: FDA-Public Use
  Company Number: US-ROCHE-752296

PATIENT
  Sex: Female

DRUGS (6)
  1. TAXOL [Concomitant]
  2. GEMZAR [Concomitant]
     Dates: start: 20100429, end: 20100909
  3. ZOMETA [Concomitant]
  4. AVASTIN [Suspect]
     Route: 065
     Dates: start: 20081219, end: 20100909
  5. TARCEVA [Suspect]
     Route: 048
     Dates: end: 20100429
  6. CARBOPLATIN [Concomitant]

REACTIONS (4)
  - DYSPNOEA [None]
  - ANAEMIA [None]
  - DEATH [None]
  - FATIGUE [None]
